FAERS Safety Report 12531793 (Version 1)
Quarter: 2016Q3

REPORT INFORMATION
  Report Type: Spontaneous
  Country: US (occurrence: US)
  Receive Date: 20160706
  Receipt Date: 20160706
  Transmission Date: 20161109
  Serious: No
  Sender: FDA-Public Use
  Company Number: US-BAYER-2016-123783

PATIENT
  Age: 93 Year
  Sex: Female
  Weight: 58.96 kg

DRUGS (3)
  1. ALEVE [Concomitant]
     Active Substance: NAPROXEN SODIUM
     Indication: MYALGIA
  2. MELATONIN [Concomitant]
     Active Substance: MELATONIN
  3. ALEVE PM [Suspect]
     Active Substance: DIPHENHYDRAMINE HYDROCHLORIDE\NAPROXEN SODIUM
     Indication: SLEEP DISORDER THERAPY
     Dosage: 1-2 DF
     Route: 048
     Dates: start: 2016

REACTIONS (4)
  - Initial insomnia [None]
  - Wrong technique in product usage process [None]
  - Drug ineffective [None]
  - Product use issue [None]
